FAERS Safety Report 23957779 (Version 1)
Quarter: 2024Q2

REPORT INFORMATION
  Report Type: Spontaneous
  Country: CA (occurrence: CA)
  Receive Date: 20240610
  Receipt Date: 20240610
  Transmission Date: 20240716
  Serious: Yes (Hospitalization, Other)
  Sender: FDA-Public Use
  Company Number: CA-JNJFOC-20240607199

PATIENT
  Age: 44 Year
  Sex: Male

DRUGS (5)
  1. OPSUMIT [Suspect]
     Active Substance: MACITENTAN
     Indication: Product used for unknown indication
     Dosage: THERAPY DURATION 2 MONTHS
     Route: 048
  2. REMODULIN [Suspect]
     Active Substance: TREPROSTINIL
     Indication: Pulmonary arterial hypertension
     Route: 058
  3. REMODULIN [Suspect]
     Active Substance: TREPROSTINIL
     Route: 058
  4. REMODULIN [Suspect]
     Active Substance: TREPROSTINIL
     Route: 058
  5. SILDENAFIL CITRATE [Concomitant]
     Active Substance: SILDENAFIL CITRATE
     Indication: Product used for unknown indication
     Route: 065

REACTIONS (4)
  - Hypotension [Not Recovered/Not Resolved]
  - Renal failure [Not Recovered/Not Resolved]
  - Infusion site pain [Not Recovered/Not Resolved]
  - Dizziness [Not Recovered/Not Resolved]
